FAERS Safety Report 4432099-0 (Version None)
Quarter: 2004Q3

REPORT INFORMATION
  Report Type: 
  Country: None (occurrence: None)
  Receive Date: 20040825
  Receipt Date: 20040816
  Transmission Date: 20050211
  Serious: Yes (Death)
  Sender: FDA-Public Use
  Company Number: US-JNJFOC-20040701923

PATIENT
  Sex: Male
  Weight: 84.82 kg

DRUGS (10)
  1. RISPERDAL [Suspect]
     Route: 049
  2. RISPERDAL [Suspect]
     Indication: SCHIZOPHRENIA
     Dosage: (TAKEN AT NIGHT)
     Route: 049
  3. LANOXIN [Concomitant]
  4. ACTOS [Concomitant]
     Indication: DIABETES MELLITUS
  5. ACCUPRIL [Concomitant]
  6. METFORMIN HCL [Concomitant]
     Dosage: PRIOR TO 05/2002
  7. COUMADIN [Concomitant]
     Indication: ATRIAL FIBRILLATION
     Dosage: PRIOR TO 05/2002
  8. LASIX [Concomitant]
     Indication: HYPERTENSION
     Dosage: PRIOR TO 05/2002
  9. HUMULIN INSULIN [Concomitant]
     Dosage: STARTED PRIOR TO 05/2002
  10. GLUCOTROL XL [Concomitant]
     Dosage: DECREASED FROM TWICE DAILY TO DAILY ON 08-APR-04

REACTIONS (3)
  - GLYCOSYLATED HAEMOGLOBIN INCREASED [None]
  - MYOCARDIAL INFARCTION [None]
  - PNEUMONIA [None]
